FAERS Safety Report 5084892-1 (Version None)
Quarter: 2006Q3

REPORT INFORMATION
  Report Type: 
  Country: None (occurrence: None)
  Receive Date: 20060815
  Receipt Date: 20060731
  Transmission Date: 20061208
  Serious: Yes (Hospitalization, Other)
  Sender: FDA-Public Use
  Company Number: 2006AL002061

PATIENT
  Age: 66 Year
  Sex: 0

DRUGS (5)
  1. METFORMIN HCL [Suspect]
     Indication: DIABETES MELLITUS NON-INSULIN-DEPENDENT
     Dosage: 850 MG; BID; PO
     Route: 048
     Dates: end: 20060417
  2. GLICLAZIDE [Concomitant]
  3. AMIODARONE [Concomitant]
  4. CIPROFLOXACIN [Concomitant]
  5. FLUCLOXACILLIN [Concomitant]

REACTIONS (4)
  - HAEMODIALYSIS [None]
  - LACTIC ACIDOSIS [None]
  - MULTI-ORGAN FAILURE [None]
  - RENAL FAILURE [None]
